FAERS Safety Report 17007696 (Version 1)
Quarter: 2019Q4

REPORT INFORMATION
  Report Type: Spontaneous
  Country: US (occurrence: US)
  Receive Date: 20191108
  Receipt Date: 20191108
  Transmission Date: 20200122
  Serious: Yes (Other)
  Sender: FDA-Public Use
  Company Number: US-009507513-1911USA000487

PATIENT
  Age: 90 Year
  Sex: Female

DRUGS (3)
  1. PROVENTIL [Suspect]
     Active Substance: ALBUTEROL
     Indication: PNEUMONIA
     Dosage: UNK, Q4H
  2. IPRATROPIUM BROMIDE. [Concomitant]
     Active Substance: IPRATROPIUM BROMIDE
     Indication: PNEUMONIA
  3. PROVENTIL [Suspect]
     Active Substance: ALBUTEROL
     Dosage: UNK, AS NEEDED BASIS

REACTIONS (2)
  - Lactic acidosis [Recovering/Resolving]
  - Product use in unapproved indication [Unknown]
